FAERS Safety Report 4820614-4 (Version None)
Quarter: 2005Q4

REPORT INFORMATION
  Report Type: 
  Country: None (occurrence: None)
  Receive Date: 20051104
  Receipt Date: 20051031
  Transmission Date: 20060501
  Serious: Yes (Hospitalization)
  Sender: FDA-Public Use
  Company Number: S05-USA-04715-01

PATIENT
  Age: 43 Year
  Sex: Male

DRUGS (4)
  1. WELLBUTRIN [Suspect]
     Indication: DEPRESSION
     Dosage: 150MG PER DAY
     Route: 048
     Dates: start: 20050701, end: 20050801
  2. CELEXA [Suspect]
     Indication: DEPRESSION
     Route: 048
     Dates: start: 20010101
  3. ABILIFY [Concomitant]
     Route: 065
  4. KLONOPIN [Concomitant]
     Route: 048

REACTIONS (4)
  - AGITATION [None]
  - ARTHRALGIA [None]
  - OEDEMA PERIPHERAL [None]
  - PARAESTHESIA [None]
